FAERS Safety Report 9148020 (Version 2)
Quarter: 2013Q1

REPORT INFORMATION
  Report Type: Spontaneous
  Country: CA (occurrence: CA)
  Receive Date: 20130308
  Receipt Date: 20130322
  Transmission Date: 20140127
  Serious: Yes (Other)
  Sender: FDA-Public Use
  Company Number: CA-AMGEN-CANSP2013001717

PATIENT
  Age: 79 Year
  Sex: Female
  Weight: 63 kg

DRUGS (5)
  1. PROLIA [Suspect]
     Indication: OSTEOPOROSIS POSTMENOPAUSAL
     Dosage: 60 MG, UNK
     Route: 058
     Dates: start: 20121218
  2. ALTACE [Concomitant]
     Indication: HYPERTENSION
     Dosage: 5 MG, QD
     Route: 048
  3. ASA [Concomitant]
     Indication: CORONARY ARTERY DISEASE
     Dosage: 80 MG, QD
     Route: 048
  4. PANTOLOC                           /01263204/ [Concomitant]
     Dosage: 40 MG, QD
  5. CRESTOR [Concomitant]
     Indication: BLOOD CHOLESTEROL INCREASED
     Dosage: 40 MG, QD
     Route: 048

REACTIONS (15)
  - Fibrin D dimer increased [Unknown]
  - Pain in extremity [Recovering/Resolving]
  - Pain [Unknown]
  - Musculoskeletal stiffness [Unknown]
  - Muscle spasms [Unknown]
  - Arthralgia [Unknown]
  - Gait disturbance [Recovering/Resolving]
  - Emotional distress [Unknown]
  - Hyperparathyroidism [Unknown]
  - Blood calcium increased [Unknown]
  - Osteocalcin increased [Unknown]
  - Synovial cyst [Unknown]
  - Bone density decreased [Unknown]
  - Intervertebral disc disorder [Unknown]
  - Osteoarthritis [Unknown]
